FAERS Safety Report 21643195 (Version 2)
Quarter: 2023Q1

REPORT INFORMATION
  Report Type: Spontaneous
  Country: GB (occurrence: None)
  Receive Date: 20221125
  Receipt Date: 20230103
  Transmission Date: 20230418
  Serious: Yes (Death, Other)
  Sender: FDA-Public Use
  Company Number: 2022A385776

PATIENT
  Age: 83 Year
  Sex: Female

DRUGS (9)
  1. ANDEXANET ALFA [Suspect]
     Active Substance: ANDEXANET ALFA
     Indication: Gastric haemorrhage
     Route: 065
     Dates: start: 20221111
  2. ALLOPURINOL [Concomitant]
     Active Substance: ALLOPURINOL
  3. APIXABAN [Concomitant]
     Active Substance: APIXABAN
     Indication: Atrial fibrillation
  4. ATORVASTATIN [Concomitant]
     Active Substance: ATORVASTATIN
  5. BISOPROLOL [Concomitant]
     Active Substance: BISOPROLOL
  6. LANSOPRAZOLE [Concomitant]
     Active Substance: LANSOPRAZOLE
  7. LOSARTAN [Concomitant]
     Active Substance: LOSARTAN
  8. ISOSORBIDE MONONITRATE [Concomitant]
     Active Substance: ISOSORBIDE MONONITRATE
  9. DILTIAZEM HYDROCHLORIDE [Concomitant]
     Active Substance: DILTIAZEM HYDROCHLORIDE

REACTIONS (2)
  - Cerebrovascular accident [Fatal]
  - Coma scale abnormal [Not Recovered/Not Resolved]

NARRATIVE: CASE EVENT DATE: 20221111
